FAERS Safety Report 25154881 (Version 1)
Quarter: 2025Q2

REPORT INFORMATION
  Report Type: Report from Study
  Country: US (occurrence: US)
  Receive Date: 20250403
  Receipt Date: 20250403
  Transmission Date: 20250716
  Serious: Yes (Hospitalization, Other)
  Sender: ABBVIE
  Company Number: US-ABBVIE-6202080

PATIENT
  Age: 81 Year
  Sex: Female

DRUGS (2)
  1. SKYRIZI [Suspect]
     Active Substance: RISANKIZUMAB-RZAA
     Indication: Crohn^s disease
     Route: 058
     Dates: start: 20240821, end: 20250317
  2. PREDNISONE [Concomitant]
     Active Substance: PREDNISONE
     Indication: Product used for unknown indication
     Dates: start: 202503

REACTIONS (3)
  - Pain [Recovering/Resolving]
  - Drug ineffective [Recovering/Resolving]
  - Obstruction [Recovering/Resolving]

NARRATIVE: CASE EVENT DATE: 20250310
